FAERS Safety Report 5857786-9 (Version None)
Quarter: 2008Q3

REPORT INFORMATION
  Report Type: 
  Country: None (occurrence: None)
  Receive Date: 20080826
  Receipt Date: 20080819
  Transmission Date: 20090109
  Serious: Yes (Hospitalization)
  Sender: FDA-Public Use
  Company Number: US-AMGEN-QUU299934

PATIENT
  Sex: Male
  Weight: 96.2 kg

DRUGS (2)
  1. ENBREL [Suspect]
     Indication: ANKYLOSING SPONDYLITIS
     Route: 058
     Dates: start: 20040101
  2. HYDROCODONE BITARTRATE [Concomitant]
     Dates: start: 20031201

REACTIONS (2)
  - DEVICE FAILURE [None]
  - HIP ARTHROPLASTY [None]
